FAERS Safety Report 20208931 (Version 4)
Quarter: 2022Q2

REPORT INFORMATION
  Report Type: Spontaneous
  Country: CO (occurrence: CO)
  Receive Date: 20211220
  Receipt Date: 20220526
  Transmission Date: 20220721
  Serious: Yes (Other)
  Sender: FDA-Public Use
  Company Number: CO-BIOMARINAP-CO-2021-140281

PATIENT
  Age: 3 Year
  Sex: Male

DRUGS (4)
  1. ALDURAZYME [Suspect]
     Active Substance: LARONIDASE
     Indication: Mucopolysaccharidosis I
     Dosage: 8.7 MG, QW
     Route: 042
     Dates: start: 20210915, end: 2021
  2. ALDURAZYME [Suspect]
     Active Substance: LARONIDASE
     Dosage: 8.7 MG, QW
     Route: 042
  3. CARVEDILOL [Concomitant]
     Active Substance: CARVEDILOL
     Indication: Cardiac disorder
     Dosage: UNK UNK, BID
     Dates: start: 2020
  4. FUROSEMIDE [Concomitant]
     Active Substance: FUROSEMIDE
     Indication: Cardiac disorder
     Dosage: UNK UNK, QD
     Dates: start: 2020

REACTIONS (11)
  - Pneumonia bacterial [Recovered/Resolved]
  - Cough [Recovered/Resolved]
  - Pyrexia [Recovered/Resolved]
  - Asthma [Recovering/Resolving]
  - Sinusitis [Recovering/Resolving]
  - Decreased appetite [Recovering/Resolving]
  - Irritability [Recovering/Resolving]
  - Insomnia [Recovering/Resolving]
  - Vomiting [Recovered/Resolved]
  - Sinusitis [Recovering/Resolving]
  - Body temperature [Recovering/Resolving]

NARRATIVE: CASE EVENT DATE: 20211203
